FAERS Safety Report 18800412 (Version 3)
Quarter: 2021Q3

REPORT INFORMATION
  Report Type: Spontaneous
  Country: US (occurrence: US)
  Receive Date: 20210128
  Receipt Date: 20210924
  Transmission Date: 20211014
  Serious: Yes (Other)
  Sender: FDA-Public Use
  Company Number: US-PURDUE-USA-2020-0200879

PATIENT
  Sex: Male

DRUGS (4)
  1. HYDROCODONE BITARTRATE AND ACETAMINOPHEN [Suspect]
     Active Substance: ACETAMINOPHEN\HYDROCODONE BITARTRATE
     Indication: PRODUCT USED FOR UNKNOWN INDICATION
     Dosage: UNK
     Route: 048
  2. TRAMADOL CR TABLETS (RHODES 21?745) [Suspect]
     Active Substance: TRAMADOL
     Indication: PAIN
     Dosage: UNK
     Route: 065
     Dates: start: 201612
  3. HYDROCODONE BITARTRATE (SIMILAR TO NDA 206627) [Suspect]
     Active Substance: HYDROCODONE BITARTRATE
     Indication: PAIN
     Dosage: UNK
     Route: 048
  4. OXYCONTIN [Suspect]
     Active Substance: OXYCODONE HYDROCHLORIDE
     Indication: PRODUCT USED FOR UNKNOWN INDICATION
     Dosage: UNK
     Route: 048

REACTIONS (15)
  - Pain [Unknown]
  - Disturbance in attention [Unknown]
  - Insomnia [Unknown]
  - Dysarthria [Unknown]
  - Intentional product use issue [Unknown]
  - Anxiety [Unknown]
  - Memory impairment [Unknown]
  - Tremor [Unknown]
  - Palpitations [Unknown]
  - Hyperhidrosis [Unknown]
  - Erectile dysfunction [Unknown]
  - Drug dependence [Unknown]
  - Dyspnoea [Unknown]
  - Euphoric mood [Unknown]
  - Emotional distress [Unknown]
